FAERS Safety Report 5710108-6 (Version None)
Quarter: 2008Q2

REPORT INFORMATION
  Report Type: 
  Country: None (occurrence: None)
  Receive Date: 20080418
  Receipt Date: 20080128
  Transmission Date: 20081010
  Serious: Yes (Disabling)
  Sender: FDA-Public Use
  Company Number: US-ASTRAZENECA-2007UW24145

PATIENT
  Age: 60 Year
  Sex: Male
  Weight: 88.5 kg

DRUGS (3)
  1. TOPROL-XL [Suspect]
     Indication: HEART RATE INCREASED
     Route: 048
     Dates: start: 20070801, end: 20071208
  2. LIPITOR [Concomitant]
  3. XANAX [Concomitant]

REACTIONS (4)
  - AGGRESSION [None]
  - ANXIETY [None]
  - DIZZINESS [None]
  - MENTAL IMPAIRMENT [None]
